FAERS Safety Report 11691451 (Version 1)
Quarter: 2015Q4

REPORT INFORMATION
  Report Type: Spontaneous
  Country: IT (occurrence: IT)
  Receive Date: 20151102
  Receipt Date: 20151102
  Transmission Date: 20160304
  Serious: Yes (Other)
  Sender: FDA-Public Use
  Company Number: PHHY2015IT138515

PATIENT
  Age: 9 Year
  Sex: Male
  Weight: 35 kg

DRUGS (1)
  1. KETOPROFEN. [Suspect]
     Active Substance: KETOPROFEN
     Indication: ALLERGY TEST POSITIVE
     Dosage: 40 MG, ONCE/SINGLE
     Route: 048
     Dates: start: 20150930, end: 20150930

REACTIONS (2)
  - Eyelid oedema [Recovered/Resolved]
  - Oral discomfort [Recovered/Resolved]

NARRATIVE: CASE EVENT DATE: 20150930
